FAERS Safety Report 4389922-8 (Version None)
Quarter: 2004Q2

REPORT INFORMATION
  Report Type: 
  Country: None (occurrence: None)
  Receive Date: 20040630
  Receipt Date: 20040630
  Transmission Date: 20050107
  Serious: Yes (Other)
  Sender: FDA-Public Use
  Company Number: None

PATIENT
  Age: 64 Year
  Sex: Female

DRUGS (3)
  1. LITHIUM CARBONATE [Suspect]
     Indication: BIPOLAR DISORDER
     Dosage: 450 MG BID
     Dates: start: 20040209, end: 20040326
  2. LITHIUM CARBONATE [Suspect]
     Indication: DEPRESSION
     Dosage: 450 MG BID
     Dates: start: 20040209, end: 20040326
  3. SYNTHROID [Concomitant]

REACTIONS (4)
  - CONDITION AGGRAVATED [None]
  - DISTURBANCE IN ATTENTION [None]
  - MOOD ALTERED [None]
  - PHARMACEUTICAL PRODUCT COMPLAINT [None]
